FAERS Safety Report 25529665 (Version 1)
Quarter: 2025Q3

REPORT INFORMATION
  Report Type: Spontaneous
  Country: US (occurrence: US)
  Receive Date: 20250708
  Receipt Date: 20250708
  Transmission Date: 20251020
  Serious: Yes (Other)
  Sender: ROCHE
  Company Number: US-ROCHE-10000328581

PATIENT
  Age: 32 Year
  Sex: Female
  Weight: 45.0 kg

DRUGS (13)
  1. CELLCEPT [Suspect]
     Active Substance: MYCOPHENOLATE MOFETIL
     Indication: Connective tissue disease-associated interstitial lung disease
     Route: 065
  2. RITUXAN [Suspect]
     Active Substance: RITUXIMAB
     Indication: Product use in unapproved indication
     Route: 065
  3. TREPROSTINIL SODIUM [Suspect]
     Active Substance: TREPROSTINIL SODIUM
     Indication: Pulmonary arterial hypertension
     Route: 055
  4. TREPROSTINIL SODIUM [Suspect]
     Active Substance: TREPROSTINIL SODIUM
     Indication: Connective tissue disease-associated interstitial lung disease
  5. OPSUMIT [Concomitant]
     Active Substance: MACITENTAN
  6. BUDESONIDE\FORMOTEROL [Concomitant]
     Active Substance: BUDESONIDE\FORMOTEROL
  7. ENSURE [Concomitant]
     Active Substance: AMINO ACIDS\DEXTROSE\ELECTROLYTES NOS\SOYBEAN OIL\VITAMINS
  8. HEPARIN [Concomitant]
     Active Substance: HEPARIN SODIUM
  9. HYDROXYCHLOROQUINE [Concomitant]
     Active Substance: HYDROXYCHLOROQUINE
  10. PANTOPRAZOLE [Concomitant]
     Active Substance: PANTOPRAZOLE
  11. PREDNISONE [Concomitant]
     Active Substance: PREDNISONE
  12. REVATIO [Concomitant]
     Active Substance: SILDENAFIL CITRATE
  13. PLAQUENIL [Concomitant]
     Active Substance: HYDROXYCHLOROQUINE SULFATE

REACTIONS (15)
  - Dyspnoea [Unknown]
  - Cardiac failure acute [Unknown]
  - Oxygen saturation decreased [Recovered/Resolved]
  - Haemodynamic instability [Recovering/Resolving]
  - Heart rate increased [Unknown]
  - Chest pain [Unknown]
  - Palpitations [Unknown]
  - Cough [Unknown]
  - Stress [Recovered/Resolved]
  - Pulmonary arterial pressure increased [Unknown]
  - Superinfection [Unknown]
  - Blood pressure increased [Unknown]
  - Hypervolaemia [Unknown]
  - Dermatitis allergic [Unknown]
  - Off label use [Unknown]

NARRATIVE: CASE EVENT DATE: 20250423
